FAERS Safety Report 7499823-4 (Version None)
Quarter: 2011Q2

REPORT INFORMATION
  Report Type: 
  Country: None (occurrence: None)
  Receive Date: 20110517
  Receipt Date: 20110509
  Transmission Date: 20111010
  Serious: Yes (Other)
  Sender: FDA-Public Use
  Company Number: 2011SP021181

PATIENT
  Age: 31 Year
  Sex: Female
  Weight: 72 kg

DRUGS (3)
  1. PANTOPRAZOLE [Concomitant]
  2. MERCILON (DESOGESTREL/ETHINYLESTRADIOL /00570801/) [Suspect]
     Indication: CONTRACEPTION
     Dosage: PO ; PO
     Route: 048
     Dates: start: 20110427, end: 20110501
  3. MERCILON (DESOGESTREL/ETHINYLESTRADIOL /00570801/) [Suspect]
     Indication: CONTRACEPTION
     Dosage: PO ; PO
     Route: 048
     Dates: start: 19990101, end: 20110422

REACTIONS (6)
  - URINARY TRACT INFECTION [None]
  - MENSTRUAL DISORDER [None]
  - DRY MOUTH [None]
  - NEPHROLITHIASIS [None]
  - INAPPROPRIATE SCHEDULE OF DRUG ADMINISTRATION [None]
  - URINARY TRACT OBSTRUCTION [None]
